FAERS Safety Report 25173612 (Version 2)
Quarter: 2025Q2

REPORT INFORMATION
  Report Type: Spontaneous
  Country: ES (occurrence: ES)
  Receive Date: 20250408
  Receipt Date: 20250410
  Transmission Date: 20250717
  Serious: No
  Sender: TOLMAR
  Company Number: ES-TOLMAR, INC.-25ES058021

PATIENT

DRUGS (1)
  1. ELIGARD [Suspect]
     Active Substance: LEUPROLIDE ACETATE
     Indication: Product used for unknown indication

REACTIONS (3)
  - Product administration error [Unknown]
  - Device occlusion [Unknown]
  - Syringe issue [Unknown]
